FAERS Safety Report 8144389-9 (Version None)
Quarter: 2012Q1

REPORT INFORMATION
  Report Type: 
  Country: None (occurrence: None)
  Receive Date: 20120217
  Receipt Date: 20120208
  Transmission Date: 20120608
  Serious: Yes (Other)
  Sender: FDA-Public Use
  Company Number: SE-ELI_LILLY_AND_COMPANY-SE201201006347

PATIENT
  Sex: Male

DRUGS (3)
  1. OMEPRAZOLE [Concomitant]
     Dosage: UNK
  2. CIALIS [Suspect]
     Dosage: UNK
     Route: 048
     Dates: start: 20100101, end: 20111201
  3. ASPIRIN [Concomitant]

REACTIONS (2)
  - OPTIC NERVE SHEATH HAEMORRHAGE [None]
  - OPTIC NEUROPATHY [None]
